FAERS Safety Report 17027338 (Version 4)
Quarter: 2020Q3

REPORT INFORMATION
  Report Type: Spontaneous
  Country: IN (occurrence: IN)
  Receive Date: 20191113
  Receipt Date: 20200930
  Transmission Date: 20201102
  Serious: Yes (Other)
  Sender: FDA-Public Use
  Company Number: IN-PFIZER INC-2018043942

PATIENT
  Age: 61 Year
  Sex: Female

DRUGS (4)
  1. FEMARA [Concomitant]
     Active Substance: LETROZOLE
     Dosage: 2.5 MG, 1X/DAY (TAKE 28 TABLETS ONCE A DAY FOR 28 DAYS BEFORE FOOD IN THE MORNING)
  2. PALBACE [Suspect]
     Active Substance: PALBOCICLIB
     Indication: BREAST CANCER METASTATIC
     Dosage: 100 MG, CYCLIC (1X/DAY (21 DAYS))
     Route: 048
     Dates: start: 20180130
  3. SHELCAL HD [Concomitant]
     Active Substance: CALCIUM CARBONATE\CHOLECALCIFEROL
     Dosage: UNK (TAKE 28 TABLETS ONCE A DAY FOR 28 DAYS BEFORE FOOD IN THE MORNING)
     Route: 048
  4. ZA [Concomitant]
     Dosage: UNK (EVERY 6 MONTHS)

REACTIONS (2)
  - Hypothyroidism [Unknown]
  - Neck pain [Unknown]
